FAERS Safety Report 7498832-9 (Version None)
Quarter: 2011Q2

REPORT INFORMATION
  Report Type: 
  Country: None (occurrence: None)
  Receive Date: 20110516
  Receipt Date: 20110506
  Transmission Date: 20111010
  Serious: Yes (Hospitalization, Other)
  Sender: FDA-Public Use
  Company Number: US-1186122

PATIENT
  Age: 79 Year
  Sex: Female
  Weight: 195 kg

DRUGS (2)
  1. SYSTANE EYE DROPS [Suspect]
     Indication: DRY EYE
     Dosage: OPHTHALMIC
     Route: 047
     Dates: start: 20100101, end: 20110101
  2. RESTASIS 0.05% OPHTHALMIC EMULSION (NOT SPECIFIED) [Suspect]
     Indication: DRY EYE
     Dosage: OPHTHALMIC
     Route: 047
     Dates: start: 20100101, end: 20110101

REACTIONS (1)
  - CHEST DISCOMFORT [None]
